FAERS Safety Report 6252394-2 (Version None)
Quarter: 2009Q2

REPORT INFORMATION
  Report Type: 
  Country: None (occurrence: None)
  Receive Date: 20090629
  Receipt Date: 20090629
  Transmission Date: 20091009
  Serious: Yes (Other)
  Sender: FDA-Public Use
  Company Number: None

PATIENT
  Sex: Male

DRUGS (1)
  1. ZICAM SWABS - ZICAM LLC [Suspect]
     Indication: NASOPHARYNGITIS
     Dosage: 1 SWAB 4 X A DAY OR EVERY 4 HRS NOSE
     Route: 045
     Dates: start: 20070110, end: 20070114

REACTIONS (2)
  - HYPOGEUSIA [None]
  - HYPOSMIA [None]
